FAERS Safety Report 21058060 (Version 2)
Quarter: 2022Q3

REPORT INFORMATION
  Report Type: Report from Study
  Country: NL (occurrence: NL)
  Receive Date: 20220708
  Receipt Date: 20220715
  Transmission Date: 20221026
  Serious: Yes (Life-Threatening, Other)
  Sender: FDA-Public Use
  Company Number: NL-CELLTRION HEALTHCARE HUNGARY KFT-2022NL009864

PATIENT

DRUGS (4)
  1. HERCEPTIN [Suspect]
     Active Substance: TRASTUZUMAB
     Indication: Non-small cell lung cancer metastatic
     Dosage: INITIAL LOADING DOSE OF 8 MG/KG BODY WEIGHT IN 21-DAY CYCLES
     Route: 042
  2. HERCEPTIN [Suspect]
     Active Substance: TRASTUZUMAB
     Dosage: MAINTENANCE DOSE OF 6 MG/KG BODY WEIGHT IN 21-DAY CYCLES
     Route: 042
  3. PERTUZUMAB [Suspect]
     Active Substance: PERTUZUMAB
     Indication: Non-small cell lung cancer metastatic
     Dosage: INITIAL LOADING DOSE OF 840 MG IN 21-DAY CYCLES
     Route: 042
  4. PERTUZUMAB [Suspect]
     Active Substance: PERTUZUMAB
     Dosage: MAINTENANCE DOSE OF 420 MG IN 21-DAY CYCLES
     Route: 042

REACTIONS (2)
  - Pneumonitis [Unknown]
  - Off label use [Unknown]
